FAERS Safety Report 6444208-2 (Version None)
Quarter: 2009Q4

REPORT INFORMATION
  Report Type: 
  Country: None (occurrence: None)
  Receive Date: 20091118
  Receipt Date: 20091110
  Transmission Date: 20100525
  Serious: Yes (Other)
  Sender: FDA-Public Use
  Company Number: US-ROCHE-503667

PATIENT
  Age: 82 Year
  Sex: Female
  Weight: 61.2 kg

DRUGS (7)
  1. BONIVA [Suspect]
     Indication: OSTEOPOROSIS
     Dosage: FORM: PILL.
     Route: 048
     Dates: start: 20070101, end: 20091031
  2. BONIVA [Suspect]
     Dosage: RECEIVED ONLY ONE DOSE.
     Route: 042
     Dates: start: 20070401
  3. LEVOTHYROXINE SODIUM [Concomitant]
  4. SIMVASTATIN [Concomitant]
  5. TOPROL-XL [Concomitant]
  6. ASPIRIN [Concomitant]
  7. OMEPRAZOLE [Concomitant]

REACTIONS (3)
  - BONE DISORDER [None]
  - CORONARY ARTERY BYPASS [None]
  - DYSPEPSIA [None]
